FAERS Safety Report 15413512 (Version 1)
Quarter: 2018Q3

REPORT INFORMATION
  Report Type: Spontaneous
  Country: GB (occurrence: GB)
  Receive Date: 20180921
  Receipt Date: 20180921
  Transmission Date: 20181010
  Serious: Yes (Other)
  Sender: FDA-Public Use
  Company Number: GB-GLAXOSMITHKLINE-GB2018167707

PATIENT
  Age: 79 Year
  Sex: Female
  Weight: 60 kg

DRUGS (1)
  1. INCRUSE ELLIPTA [Suspect]
     Active Substance: UMECLIDINIUM BROMIDE
     Indication: PRODUCT USED FOR UNKNOWN INDICATION
     Dosage: 55 ?G, UNK
     Route: 055
     Dates: start: 20180808, end: 20180818

REACTIONS (7)
  - Urinary tract disorder [Recovered/Resolved]
  - Upper respiratory tract infection [Recovered/Resolved]
  - Urinary retention [Recovered/Resolved]
  - Oral pain [Recovered/Resolved]
  - Gingival pain [Recovered/Resolved]
  - Cough [Recovered/Resolved]
  - Glossodynia [Recovered/Resolved]

NARRATIVE: CASE EVENT DATE: 20180810
